FAERS Safety Report 6170860-5 (Version None)
Quarter: 2009Q2

REPORT INFORMATION
  Report Type: 
  Country: None (occurrence: None)
  Receive Date: 20090427
  Receipt Date: 20090415
  Transmission Date: 20091009
  Serious: Yes (Other)
  Sender: FDA-Public Use
  Company Number: 2009-195033-NL

PATIENT
  Age: 74 Year
  Sex: Male
  Weight: 82.1 kg

DRUGS (11)
  1. MIRTAZAPINE [Suspect]
  2. DIVALPROEX SODIUM [Suspect]
  3. RISPERIDONE [Suspect]
  4. LISINOPRIL [Suspect]
  5. ASPIRIN [Suspect]
  6. FOLATE [Suspect]
  7. HYDROXYZINE [Concomitant]
  8. METHYLPREDNISOLONE 4MG TAB [Concomitant]
  9. PERMETHRIN [Concomitant]
  10. QUETIAPINE FUMARATE [Concomitant]
  11. LORAZEPAM [Concomitant]

REACTIONS (23)
  - ACARODERMATITIS [None]
  - ALCOHOL WITHDRAWAL SYNDROME [None]
  - APHASIA [None]
  - ARACHNOID CYST [None]
  - ATROPHY [None]
  - BODY TEMPERATURE FLUCTUATION [None]
  - CEREBRAL ATROPHY [None]
  - CEREBRAL VENTRICLE DILATATION [None]
  - DEMENTIA [None]
  - FATIGUE [None]
  - HAEMATOCRIT DECREASED [None]
  - HAEMOGLOBIN DECREASED [None]
  - HEART RATE INCREASED [None]
  - HYPERPHAGIA [None]
  - HYPOTHALAMO-PITUITARY DISORDER [None]
  - KORSAKOFF'S PSYCHOSIS ALCOHOLIC [None]
  - PALLOR [None]
  - PNEUMONIA ASPIRATION [None]
  - RASH GENERALISED [None]
  - RASH MACULO-PAPULAR [None]
  - SCRATCH [None]
  - SPEECH DISORDER [None]
  - TEMPERATURE REGULATION DISORDER [None]
